FAERS Safety Report 6539435-X (Version None)
Quarter: 2010Q1

REPORT INFORMATION
  Report Type: 
  Country: None (occurrence: None)
  Receive Date: 20100115
  Receipt Date: 20100107
  Transmission Date: 20100710
  Serious: Yes (Death, Life-Threatening, Hospitalization)
  Sender: FDA-Public Use
  Company Number: FR-JNJFOC-20041102173

PATIENT
  Age: 70 Year
  Sex: Female
  Weight: 70 kg

DRUGS (10)
  1. REMICADE [Suspect]
     Indication: RHEUMATOID ARTHRITIS
     Dosage: 20 INFUSIONS
     Route: 042
  2. CORTANCYL [Suspect]
     Indication: RHEUMATOID ARTHRITIS
     Route: 048
  3. CELEBREX [Suspect]
     Indication: RHEUMATOID ARTHRITIS
     Route: 048
  4. NOVATREX [Concomitant]
     Indication: RHEUMATOID ARTHRITIS
     Dosage: 6 TABLETS DAILY
     Route: 048
  5. DIDRONEL [Concomitant]
     Indication: OSTEOPOROSIS PROPHYLAXIS
  6. FIXICAL [Concomitant]
     Indication: OSTEOPOROSIS PROPHYLAXIS
  7. SPECIAFOLDINE [Concomitant]
  8. OMEPRAZOLE [Concomitant]
     Route: 048
  9. METHOTREXATE [Concomitant]
  10. CORTICOSTEROIDS [Concomitant]

REACTIONS (8)
  - ACUTE PULMONARY OEDEMA [None]
  - ARRHYTHMIA [None]
  - CARDIAC ARREST [None]
  - CARDIOGENIC SHOCK [None]
  - MYOCARDIAL INFARCTION [None]
  - RESPIRATORY DISTRESS [None]
  - SINUSITIS [None]
  - VENTRICULAR HYPOKINESIA [None]
